FAERS Safety Report 8641496 (Version 2)
Quarter: 2012Q4

REPORT INFORMATION
  Report Type: 
  Country: GB (occurrence: GB)
  Receive Date: 20120628
  Receipt Date: 20121120
  Transmission Date: 20130627
  Serious: Yes (Hospitalization)
  Sender: FDA-Public Use
  Company Number: GB-WATSON-2012-10640

PATIENT
  Age: 37 Year
  Sex: Male

DRUGS (6)
  1. OMEPRAZOLE (UNKNOWN) [Suspect]
     Indication: PRODUCT USED FOR UNKNOWN INDICATION
     Dosage: UNK mg, UNK
     Route: 065
     Dates: start: 20110603, end: 201110
  2. OMEPRAZOLE [Suspect]
     Indication: ABDOMINAL DISCOMFORT
     Dosage: 20 mg, daily
     Route: 048
     Dates: start: 20110427
  3. QUETIAPINE [Concomitant]
     Indication: PRODUCT USED FOR UNKNOWN INDICATION
     Route: 065
  4. TRIMETHOPRIM [Concomitant]
     Indication: PRODUCT USED FOR UNKNOWN INDICATION
     Dosage: UNK
     Route: 065
     Dates: start: 20111114
  5. DOXYCYCLINE [Concomitant]
     Indication: PRODUCT USED FOR UNKNOWN INDICATION
     Dosage: UNK
     Route: 065
     Dates: start: 20111114
  6. LAXIDO [Concomitant]
     Indication: PRODUCT USED FOR UNKNOWN INDICATION
     Dosage: UNK
     Route: 065
     Dates: start: 20111104

REACTIONS (19)
  - Anxiety [Unknown]
  - Nausea [Unknown]
  - Abdominal discomfort [Unknown]
  - Vomiting [Unknown]
  - Pyrexia [Unknown]
  - Temperature regulation disorder [Unknown]
  - Photosensitivity reaction [Unknown]
  - Anaemia [Unknown]
  - Jaundice [Unknown]
  - Hair colour changes [Unknown]
  - Dry skin [Unknown]
  - Hyperchlorhydria [Unknown]
  - Dental caries [Unknown]
  - Dehydration [Unknown]
  - Skin discolouration [Unknown]
  - Impaired healing [Unknown]
  - Abdominal distension [Unknown]
  - Nail disorder [Unknown]
  - Gastric polyps [Unknown]
